FAERS Safety Report 6619206-6 (Version None)
Quarter: 2010Q1

REPORT INFORMATION
  Report Type: 
  Country: None (occurrence: None)
  Receive Date: 20100302
  Receipt Date: 20100217
  Transmission Date: 20100710
  Serious: Yes (Hospitalization)
  Sender: FDA-Public Use
  Company Number: 430020K09USA

PATIENT
  Age: 45 Year
  Sex: Female
  Weight: 52 kg

DRUGS (7)
  1. NOVANTRONE [Suspect]
     Indication: MULTIPLE SCLEROSIS
     Dosage: INTRAVENOUS (NOT OTHERWISE SPECIFIED)
     Route: 042
     Dates: start: 20020101, end: 20020101
  2. KEPPRA [Concomitant]
  3. SYNTHROID [Concomitant]
  4. PROVIGIL [Concomitant]
  5. LORTAB (VICODIN) [Concomitant]
  6. WELLBUTRIN [Concomitant]
  7. REBIF [Concomitant]

REACTIONS (8)
  - BREAST CANCER IN SITU [None]
  - BREAST PROSTHESIS USER [None]
  - CONNECTIVE TISSUE DISORDER [None]
  - DEVICE DISLOCATION [None]
  - GRAFT INFECTION [None]
  - IMPLANT SITE REACTION [None]
  - NIPPLE INFECTION [None]
  - TRANSPLANT [None]
